FAERS Safety Report 4343473-5 (Version None)
Quarter: 2004Q2

REPORT INFORMATION
  Report Type: 
  Country: None (occurrence: None)
  Receive Date: 20040412
  Receipt Date: 20031106
  Transmission Date: 20050107
  Serious: Yes (Other)
  Sender: FDA-Public Use
  Company Number: DE-JNJFOC-20031101224

PATIENT
  Sex: Male

DRUGS (2)
  1. RISPERDAL [Suspect]
     Indication: DEMENTIA
     Dosage: ORAL
     Route: 048
  2. TRIMIPRAMINE MALEATE [Concomitant]

REACTIONS (1)
  - THROMBOCYTOPENIA [None]
